FAERS Safety Report 15905293 (Version 1)
Quarter: 2019Q1

REPORT INFORMATION
  Report Type: Spontaneous
  Country: US (occurrence: US)
  Receive Date: 20190110
  Receipt Date: 20190110
  Transmission Date: 20190417
  Serious: No
  Sender: FDA-Public Use
  Company Number: None

PATIENT
  Age: 29 Month
  Sex: Female

DRUGS (1)
  1. NPLATE [Suspect]
     Active Substance: ROMIPLOSTIM
     Indication: THROMBOCYTOPENIA
     Dosage: 1MCG PER KG EVERY WEEK SUBQ
     Route: 058

REACTIONS (11)
  - Abdominal pain [None]
  - Cyst [None]
  - Feeling hot [None]
  - Decreased appetite [None]
  - Incorrect dose administered [None]
  - Nausea [None]
  - Insomnia [None]
  - Vomiting [None]
  - Arthralgia [None]
  - White blood cell count increased [None]
  - Myalgia [None]

NARRATIVE: CASE EVENT DATE: 20180222
